FAERS Safety Report 5709409-7 (Version None)
Quarter: 2008Q2

REPORT INFORMATION
  Report Type: 
  Country: None (occurrence: None)
  Receive Date: 20080418
  Receipt Date: 20080409
  Transmission Date: 20081010
  Serious: Yes (Hospitalization)
  Sender: FDA-Public Use
  Company Number: FR-ASTRAZENECA-2008CG00562

PATIENT
  Age: 27421 Day
  Sex: Female

DRUGS (6)
  1. DIPRIVAN [Suspect]
     Indication: GENERAL ANAESTHESIA
     Route: 042
     Dates: start: 20080222, end: 20080222
  2. ATORVASTATIN CALCIUM [Suspect]
     Indication: HYPERCHOLESTEROLAEMIA
     Dates: end: 20080402
  3. ZOLPIDEM [Suspect]
     Indication: INSOMNIA
     Dates: end: 20080402
  4. METEOSPASMYL [Suspect]
     Dates: start: 20080222, end: 20080402
  5. COZAAR [Concomitant]
     Indication: HYPERTENSION
  6. SOTALOL HCL [Concomitant]
     Indication: HYPERTENSION

REACTIONS (1)
  - HEPATITIS [None]
